FAERS Safety Report 15362026 (Version 2)
Quarter: 2018Q3

REPORT INFORMATION
  Report Type: Spontaneous
  Country: US (occurrence: US)
  Receive Date: 20180907
  Receipt Date: 20180923
  Transmission Date: 20181010
  Serious: No
  Sender: FDA-Public Use
  Company Number: US-GLAXOSMITHKLINE-US2018GSK155630

PATIENT
  Sex: Female

DRUGS (2)
  1. SUMATRIPTAN SUCCINATE SOLUTION FOR INJECTION IN PRE?FILLED PEN [Suspect]
     Active Substance: SUMATRIPTAN SUCCINATE
     Indication: PRODUCT USED FOR UNKNOWN INDICATION
     Dosage: UNK
  2. SUMATRIPTAN SUCCINATE SOLUTION FOR INJECTION IN PRE?FILLED PEN [Suspect]
     Active Substance: SUMATRIPTAN SUCCINATE
     Dosage: UNK

REACTIONS (2)
  - Product quality issue [Unknown]
  - Drug dose omission [Unknown]
